FAERS Safety Report 8490971-9 (Version None)
Quarter: 2012Q3

REPORT INFORMATION
  Report Type: 
  Country: None (occurrence: None)
  Receive Date: 20120706
  Receipt Date: 20120626
  Transmission Date: 20120928
  Serious: Yes (Hospitalization, Other)
  Sender: FDA-Public Use
  Company Number: GB-ACCORD-013969

PATIENT
  Sex: Female

DRUGS (2)
  1. DONEPEZIL HCL [Suspect]
     Route: 048
  2. E 45 [Concomitant]
     Indication: DRY SKIN
     Dosage: APPLY TWICE A DAY
     Route: 061

REACTIONS (2)
  - BRADYCARDIA [None]
  - ELECTROCARDIOGRAM QT PROLONGED [None]
